FAERS Safety Report 9457178 (Version 2)
Quarter: 2013Q3

REPORT INFORMATION
  Report Type: Spontaneous
  Country: US (occurrence: US)
  Receive Date: 20130814
  Receipt Date: 20130822
  Transmission Date: 20140515
  Serious: No
  Sender: FDA-Public Use
  Company Number: US-009507513-1308USA002170

PATIENT
  Age: 73 Year
  Sex: Male

DRUGS (14)
  1. AZASITE [Suspect]
     Indication: DRY EYE
     Dosage: 1 DROP IN THE AFFECTED EYE(S) TWICE DAILY FOR THE FIRST TWO DAYS AND THEN 1 DROP IN THE AFFECTED EYE
     Route: 047
     Dates: start: 20130724
  2. RESTASIS [Concomitant]
  3. TIMOLOL [Concomitant]
  4. LATANOPROST [Concomitant]
  5. BYSTOLIC [Concomitant]
  6. LOSARTAN POTASSIUM [Concomitant]
  7. PLAVIX [Concomitant]
  8. FLUOXETINE [Concomitant]
  9. ADVAIR [Concomitant]
  10. GABAPENTIN [Concomitant]
  11. FINASTERIDE [Concomitant]
  12. TAMSULOSIN HYDROCHLORIDE [Concomitant]
  13. TEMAZEPAM [Concomitant]
  14. CRESTOR [Concomitant]

REACTIONS (4)
  - Visual acuity reduced [Not Recovered/Not Resolved]
  - Drug dose omission [Unknown]
  - Off label use [Unknown]
  - Drug prescribing error [Unknown]
